FAERS Safety Report 17057373 (Version 2)
Quarter: 2020Q1

REPORT INFORMATION
  Report Type: Report from Study
  Country: US (occurrence: US)
  Receive Date: 20191121
  Receipt Date: 20200213
  Transmission Date: 20200409
  Serious: Yes (Other)
  Sender: FDA-Public Use
  Company Number: US-GILEAD-2019-0438223

PATIENT
  Sex: Female

DRUGS (2)
  1. LEDIPASVIR/SOFOSBUVIR [Suspect]
     Active Substance: LEDIPASVIR\SOFOSBUVIR
     Dosage: 1 DOSAGE FORM, QD
     Route: 048
  2. LEDIPASVIR/SOFOSBUVIR [Suspect]
     Active Substance: LEDIPASVIR\SOFOSBUVIR
     Indication: HEPATITIS C
     Dosage: 2 DOSAGE FORM, QD
     Route: 065

REACTIONS (4)
  - Pneumothorax [Recovered/Resolved with Sequelae]
  - Coma [Recovered/Resolved with Sequelae]
  - Craniocerebral injury [Not Recovered/Not Resolved]
  - Prescribed overdose [Recovered/Resolved]
